FAERS Safety Report 7427483-7 (Version None)
Quarter: 2011Q2

REPORT INFORMATION
  Report Type: 
  Country: None (occurrence: None)
  Receive Date: 20110420
  Receipt Date: 20110407
  Transmission Date: 20111010
  Serious: Yes (Hospitalization, Other)
  Sender: FDA-Public Use
  Company Number: US-ELI_LILLY_AND_COMPANY-US201003005301

PATIENT
  Sex: Female

DRUGS (8)
  1. CENTRUM [Concomitant]
     Dosage: UNK, DAILY (1/D)
  2. BRIMONIDINE TARTRATE [Concomitant]
     Dosage: 15 MG, 3/D
  3. PAXIL [Concomitant]
     Dosage: UNK, EACH MORNING
  4. XANAX [Concomitant]
     Indication: ANXIETY
     Dosage: UNK, AS NEEDED
  5. NORCO [Concomitant]
     Indication: PAIN
  6. TRAVATAN [Concomitant]
     Dosage: UNK, EACH EVENING
  7. FORTEO [Suspect]
     Indication: OSTEOPOROSIS
     Dosage: 20 UG, DAILY (1/D)
     Route: 065
  8. TYLENOL (CAPLET) [Concomitant]
     Dosage: 2 D/F, AS NEEDED AT BEDTIME

REACTIONS (7)
  - LACERATION [None]
  - HIP FRACTURE [None]
  - DRUG DOSE OMISSION [None]
  - FALL [None]
  - DIZZINESS [None]
  - MALAISE [None]
  - FATIGUE [None]
